FAERS Safety Report 5929719-8 (Version None)
Quarter: 2008Q4

REPORT INFORMATION
  Report Type: 
  Country: None (occurrence: None)
  Receive Date: 20080929
  Receipt Date: 20080520
  Transmission Date: 20090506
  Serious: No
  Sender: FDA-Public Use
  Company Number: PHEH2008US04758

PATIENT
  Sex: Female

DRUGS (1)
  1. TASIGNA [Suspect]

REACTIONS (1)
  - DRUG INEFFECTIVE [None]
